FAERS Safety Report 9513604 (Version 1)
Quarter: 2013Q3

REPORT INFORMATION
  Report Type: Report from Study
  Country: GB (occurrence: GB)
  Receive Date: 20130910
  Receipt Date: 20130910
  Transmission Date: 20140515
  Serious: Yes (Other)
  Sender: FDA-Public Use
  Company Number: GB-VIIV HEALTHCARE LIMITED-A1040875A

PATIENT
  Age: 35 Year
  Sex: Female

DRUGS (4)
  1. COMBIVIR [Suspect]
     Indication: ANTIRETROVIRAL THERAPY
     Dosage: 2TAB PER DAY
     Route: 048
     Dates: start: 20090324
  2. INTELENCE [Suspect]
     Indication: ANTIRETROVIRAL THERAPY
     Dosage: 400MG PER DAY
     Route: 048
     Dates: start: 20090324
  3. PREZISTA [Suspect]
     Indication: ANTIRETROVIRAL THERAPY
     Dosage: 2TAB PER DAY
     Route: 048
  4. NORVIR [Suspect]
     Indication: ANTIRETROVIRAL THERAPY
     Dosage: 200MG PER DAY
     Route: 048
     Dates: start: 20090324

REACTIONS (2)
  - Abortion spontaneous [Unknown]
  - Exposure during pregnancy [Unknown]
